FAERS Safety Report 9720852 (Version 1)
Quarter: 2013Q4

REPORT INFORMATION
  Report Type: Spontaneous
  Country: JP (occurrence: JP)
  Receive Date: 20131129
  Receipt Date: 20131129
  Transmission Date: 20140711
  Serious: Yes (Death, Other)
  Sender: FDA-Public Use
  Company Number: JP-MERCK-1311JPN011804

PATIENT
  Age: 65 Year
  Sex: Female

DRUGS (3)
  1. REFLEX [Suspect]
     Indication: DEPRESSION
     Dosage: UNK
     Route: 048
  2. BROTIZOLAM [Concomitant]
     Route: 048
  3. QUETIAPINE FUMARATE [Concomitant]
     Route: 048

REACTIONS (1)
  - Completed suicide [Fatal]
